FAERS Safety Report 7797986-4 (Version None)
Quarter: 2011Q4

REPORT INFORMATION
  Report Type: 
  Country: None (occurrence: None)
  Receive Date: 20111005
  Receipt Date: 20110928
  Transmission Date: 20120403
  Serious: Yes (Hospitalization)
  Sender: FDA-Public Use
  Company Number: JP-GLAXOSMITHKLINE-B0744503A

PATIENT
  Sex: Female

DRUGS (14)
  1. VOLTAREN [Concomitant]
     Route: 048
  2. ADJUST A [Concomitant]
     Indication: ILEUS
     Dosage: 80MG PER DAY
     Route: 048
  3. ENALAPRIL MALEATE [Concomitant]
     Indication: HYPERTENSION
     Dosage: 5MG PER DAY
     Route: 048
     Dates: end: 20110822
  4. CANDESARTAN CILEXETIL [Concomitant]
     Indication: HYPERTENSION
     Dosage: 8MG PER DAY
     Route: 048
     Dates: end: 20110822
  5. MAGMITT [Concomitant]
     Indication: ILEUS
     Dosage: 1980MG PER DAY
     Route: 048
  6. BIO THREE [Concomitant]
     Dosage: 3MG PER DAY
     Route: 048
     Dates: end: 20110822
  7. CHINESE MEDICINE [Concomitant]
     Indication: ILEUS
     Route: 048
     Dates: end: 20110822
  8. NOVORAPID [Concomitant]
     Indication: DIABETES MELLITUS
     Route: 058
  9. ASPIRIN [Concomitant]
     Indication: ARTERIOSCLEROSIS OBLITERANS
     Dosage: 100MG PER DAY
     Route: 048
     Dates: end: 20110822
  10. EPADEL S [Concomitant]
     Indication: ARTERIOSCLEROSIS OBLITERANS
     Dosage: 1800MG PER DAY
     Route: 048
     Dates: end: 20110822
  11. VALTREX [Suspect]
     Indication: RASH
     Dosage: 1000MG PER DAY
     Route: 048
     Dates: start: 20110820, end: 20110820
  12. AMARYL [Concomitant]
     Indication: DIABETES MELLITUS
     Dosage: 2MG PER DAY
     Route: 048
     Dates: end: 20110822
  13. CRESTOR [Concomitant]
     Indication: HYPERCHOLESTEROLAEMIA
     Dosage: 5MG PER DAY
     Route: 048
     Dates: end: 20110822
  14. AMLODIPINE [Concomitant]
     Indication: HYPERTENSION
     Dosage: 5MG PER DAY
     Route: 048

REACTIONS (5)
  - RENAL TUBULAR DISORDER [None]
  - OEDEMA PERIPHERAL [None]
  - BLOOD CREATININE INCREASED [None]
  - MALAISE [None]
  - RENAL FAILURE ACUTE [None]
